FAERS Safety Report 6938123-5 (Version None)
Quarter: 2010Q3

REPORT INFORMATION
  Report Type: 
  Country: None (occurrence: None)
  Receive Date: 20100824
  Receipt Date: 20100423
  Transmission Date: 20110219
  Serious: No
  Sender: FDA-Public Use
  Company Number: US-BAYER-201020372NA

PATIENT
  Sex: Female

DRUGS (1)
  1. MIRENA [Suspect]
     Indication: PRODUCT USED FOR UNKNOWN INDICATION
     Dosage: FREQUENCY: CONTINUOUS
     Route: 015
     Dates: start: 20070101

REACTIONS (5)
  - ABDOMINAL PAIN UPPER [None]
  - BREAST TENDERNESS [None]
  - FATIGUE [None]
  - MENSTRUATION IRREGULAR [None]
  - PREGNANCY [None]
